FAERS Safety Report 24672688 (Version 1)
Quarter: 2024Q4

REPORT INFORMATION
  Report Type: Spontaneous
  Country: AU (occurrence: AU)
  Receive Date: 20241127
  Receipt Date: 20241127
  Transmission Date: 20250115
  Serious: Yes (Other)
  Sender: CSL BEHRING
  Company Number: AU-BEH-2024185303

PATIENT
  Age: 63 Year
  Sex: Female

DRUGS (1)
  1. HUMAN IMMUNOGLOBULIN G [Suspect]
     Active Substance: HUMAN IMMUNOGLOBULIN G
     Indication: Plasma cell myeloma
     Dosage: 30G / 4 WEEKLY
     Route: 065

REACTIONS (3)
  - Tachycardia [Unknown]
  - Chills [Unknown]
  - Tachypnoea [Unknown]

NARRATIVE: CASE EVENT DATE: 20241101
